FAERS Safety Report 26166954 (Version 1)
Quarter: 2025Q4

REPORT INFORMATION
  Report Type: Spontaneous
  Country: EU (occurrence: EU)
  Receive Date: 20251217
  Receipt Date: 20251217
  Transmission Date: 20260118
  Serious: Yes (Other)
  Sender: TEVA
  Company Number: None

PATIENT
  Age: 61 Year
  Sex: Male
  Weight: 57 kg

DRUGS (11)
  1. LEFLUNOMIDE [Suspect]
     Active Substance: LEFLUNOMIDE
     Indication: Rheumatoid arthritis
     Dosage: C/24 H
     Route: 048
     Dates: start: 20250814
  2. CONDROSAN [Concomitant]
     Indication: Arthralgia
     Dosage: 800.0 MG DE, 60 CAPSULES
     Route: 048
     Dates: start: 20240528
  3. METFORMIN [Concomitant]
     Active Substance: METFORMIN HYDROCHLORIDE
     Indication: Insulin-requiring type 2 diabetes mellitus
     Dosage: DECOCCE, EFG, 50 TABLETS, METFORMIN CINFA
     Route: 048
     Dates: start: 20140513
  4. CALCIUM CARBONATE\CHOLECALCIFEROL [Concomitant]
     Active Substance: CALCIUM CARBONATE\CHOLECALCIFEROL
     Indication: Rheumatoid arthritis
     Dosage: 1.0 COMP C/24 H, 600 MG/1000 IU, 30 TABLETS
     Route: 048
     Dates: start: 20250808
  5. JANUVIA [Concomitant]
     Active Substance: SITAGLIPTIN PHOSPHATE
     Indication: Insulin-requiring type 2 diabetes mellitus
     Dosage: C/24 H, 28 TABLETS
     Route: 048
     Dates: start: 20210226
  6. GABAPENTIN [Concomitant]
     Active Substance: GABAPENTIN
     Indication: Arthralgia
     Dosage: 300.0 MG CE, EFG, 90 CAPSULES
     Route: 048
     Dates: start: 20231019
  7. TRAMADOL HYDROCHLORIDE [Concomitant]
     Active Substance: TRAMADOL HYDROCHLORIDE
     Indication: Insulin-requiring type 2 diabetes mellitus
     Dosage: 50.0 MG CE, 60 CAPSULES
     Route: 048
     Dates: start: 20231019
  8. PREDNISONE [Concomitant]
     Active Substance: PREDNISONE
     Indication: Rheumatoid arthritis
     Dosage: 10.0 MG DE, 30 TABLETS
     Route: 048
     Dates: start: 20250808
  9. FERROUS SULFATE [Concomitant]
     Active Substance: FERROUS SULFATE
     Indication: Iron deficiency anaemia
     Dosage: C/24 H AM, 30 TABLETS
     Route: 048
     Dates: start: 20210310
  10. ANTALGIN [Concomitant]
     Indication: Arthralgia
     Dosage: DECE, 40 TABLETS
     Route: 048
     Dates: start: 20231010
  11. LANTUS SOLOSTAR [Concomitant]
     Active Substance: INSULIN GLARGINE
     Indication: Insulin-requiring type 2 diabetes mellitus
     Dosage: 30.0 UI C/24 H, 100 UNITS/ML, 5 PRE-FILLED PENS OF 3 ML
     Route: 058
     Dates: start: 20230831

REACTIONS (1)
  - Arthralgia [Not Recovered/Not Resolved]

NARRATIVE: CASE EVENT DATE: 20251125
